FAERS Safety Report 9788204 (Version 1)
Quarter: 2013Q4

REPORT INFORMATION
  Report Type: Spontaneous
  Country: US (occurrence: None)
  Receive Date: 20131227
  Receipt Date: 20131227
  Transmission Date: 20140711
  Serious: Yes (Hospitalization)
  Sender: FDA-Public Use
  Company Number: None

PATIENT
  Age: 84 Year
  Sex: Male
  Weight: 86.3 kg

DRUGS (13)
  1. ASPIRIN [Suspect]
     Indication: CORONARY ARTERY DISEASE
     Dosage: RECENT?81MG?Q MWF?PO
     Route: 048
  2. PREDNISONE [Suspect]
     Indication: INTERSTITIAL LUNG DISEASE
     Dosage: CHRONIC ?
     Route: 048
  3. TERAZOSIN [Concomitant]
  4. XANAX [Concomitant]
  5. AMBIEN [Concomitant]
  6. MVI [Concomitant]
  7. BACTRIM DS [Concomitant]
  8. PRILOSEC [Concomitant]
  9. CELLCEPT [Concomitant]
  10. FUROSEMIDE [Concomitant]
  11. METOPROLOL TARTRATE [Concomitant]
  12. CALCIUM+VIT D [Concomitant]
  13. ART TEARS [Concomitant]

REACTIONS (3)
  - Haemorrhagic anaemia [None]
  - Upper gastrointestinal haemorrhage [None]
  - Diverticulum intestinal [None]
